FAERS Safety Report 15476146 (Version 35)
Quarter: 2022Q1

REPORT INFORMATION
  Report Type: Report from Study
  Country: CA (occurrence: CA)
  Receive Date: 20181009
  Receipt Date: 20220106
  Transmission Date: 20220424
  Serious: Yes (Hospitalization, Other)
  Sender: FDA-Public Use
  Company Number: PHHY2017CA028638

PATIENT
  Age: 68 Year
  Sex: Male
  Weight: 74.6 kg

DRUGS (11)
  1. SANDOSTATIN LAR DEPOT [Suspect]
     Active Substance: OCTREOTIDE ACETATE
     Indication: Carcinoid tumour
     Dosage: 20 MG, QMO (ONCE A MONTH)
     Route: 030
     Dates: start: 20161207, end: 20170106
  2. SANDOSTATIN LAR DEPOT [Suspect]
     Active Substance: OCTREOTIDE ACETATE
     Dosage: 30 MG, QMO (EVERY 4 WEEKS)
     Route: 030
     Dates: start: 20161207
  3. SANDOSTATIN LAR DEPOT [Suspect]
     Active Substance: OCTREOTIDE ACETATE
     Dosage: 30 MG, QMO (EVERY 4 WEEKS)
     Route: 030
     Dates: start: 201701
  4. SANDOSTATIN LAR DEPOT [Suspect]
     Active Substance: OCTREOTIDE ACETATE
     Dosage: 30 MG, Q4W (EVERY 4 WEEKS)
     Route: 030
     Dates: start: 20180831
  5. SANDOSTATIN LAR DEPOT [Suspect]
     Active Substance: OCTREOTIDE ACETATE
     Dosage: 30 MG, Q4W
     Route: 030
     Dates: start: 20210923
  6. SANDOSTATIN LAR DEPOT [Suspect]
     Active Substance: OCTREOTIDE ACETATE
     Dosage: 60 MG, Q4W
     Route: 030
  7. SANDOSTATIN [Suspect]
     Active Substance: OCTREOTIDE ACETATE
     Indication: Carcinoid tumour
     Dosage: UNK UNK, TID
     Route: 058
     Dates: start: 20161213, end: 20161222
  8. SANDOSTATIN [Suspect]
     Active Substance: OCTREOTIDE ACETATE
  9. SANDOSTATIN [Suspect]
     Active Substance: OCTREOTIDE ACETATE
  10. CEPHALEXIN [Concomitant]
     Active Substance: CEPHALEXIN
     Indication: Product used for unknown indication
     Dosage: 500 MG, QID
     Route: 065
  11. UNSPECIFIED INGREDIENT [Concomitant]
     Active Substance: UNSPECIFIED INGREDIENT
     Indication: Product used for unknown indication
     Dosage: 3 DF (2 CAPS WITH MEALS, 1 CAP WITH SNACKS)
     Route: 065

REACTIONS (40)
  - Cholelithiasis [Unknown]
  - Pain [Unknown]
  - Macular degeneration [Unknown]
  - Visual acuity reduced [Unknown]
  - Cataract [Recovered/Resolved]
  - Visual impairment [Unknown]
  - Blood pressure increased [Unknown]
  - Prostate cancer [Unknown]
  - Prostatomegaly [Unknown]
  - Dysuria [Unknown]
  - Second primary malignancy [Unknown]
  - Diarrhoea haemorrhagic [Unknown]
  - Abdominal pain upper [Not Recovered/Not Resolved]
  - Osteoarthritis [Unknown]
  - Peripheral swelling [Unknown]
  - Blood pressure systolic increased [Unknown]
  - Arthralgia [Unknown]
  - Fall [Unknown]
  - Pain in extremity [Unknown]
  - Fatigue [Unknown]
  - Upper limb fracture [Unknown]
  - Cystitis [Unknown]
  - Malaise [Unknown]
  - Hot flush [Unknown]
  - Feeling cold [Unknown]
  - Abdominal discomfort [Unknown]
  - Anal haemorrhage [Unknown]
  - Constipation [Unknown]
  - Urinary tract infection [Unknown]
  - Eye pain [Unknown]
  - Chest discomfort [Unknown]
  - Hypoaesthesia [Unknown]
  - Anxiety [Unknown]
  - Headache [Not Recovered/Not Resolved]
  - Abdominal pain [Recovered/Resolved]
  - Abdominal pain [Unknown]
  - Diarrhoea [Recovering/Resolving]
  - Abdominal pain lower [Unknown]
  - Injection site pain [Unknown]
  - Incorrect dose administered [Unknown]

NARRATIVE: CASE EVENT DATE: 20170217
